FAERS Safety Report 24640783 (Version 1)
Quarter: 2024Q4

REPORT INFORMATION
  Report Type: Report from Study
  Country: DE (occurrence: DE)
  Receive Date: 20241120
  Receipt Date: 20241120
  Transmission Date: 20250115
  Serious: Yes (Other)
  Sender: RANBAXY
  Company Number: DE-SUN PHARMACEUTICAL INDUSTRIES LTD-2024R1-479748

PATIENT
  Sex: Male

DRUGS (2)
  1. ACETAZOLAMIDE [Suspect]
     Active Substance: ACETAZOLAMIDE
     Indication: Hereditary choroidal dystrophy
     Dosage: 250 MILLIGRAM, BID
     Route: 048
  2. DORZOLAMIDE [Suspect]
     Active Substance: DORZOLAMIDE
     Indication: Hereditary choroidal dystrophy
     Dosage: UNK UNK, TID
     Route: 061

REACTIONS (2)
  - Therapy non-responder [Unknown]
  - Drug intolerance [Unknown]
